FAERS Safety Report 5269224-8 (Version None)
Quarter: 2007Q1

REPORT INFORMATION
  Report Type: 
  Country: None (occurrence: None)
  Receive Date: 20070319
  Receipt Date: 20070307
  Transmission Date: 20070707
  Serious: Yes (Hospitalization, Other)
  Sender: FDA-Public Use
  Company Number: US-PFIZER INC-2006095528

PATIENT
  Sex: Male

DRUGS (2)
  1. CELEBREX [Suspect]
     Indication: PAIN
     Route: 048
  2. VIOXX [Suspect]
     Route: 048

REACTIONS (2)
  - PULMONARY EMBOLISM [None]
  - THROMBOSIS [None]
